FAERS Safety Report 23958026 (Version 1)
Quarter: 2024Q2

REPORT INFORMATION
  Report Type: Spontaneous
  Country: IN (occurrence: None)
  Receive Date: 20240610
  Receipt Date: 20240610
  Transmission Date: 20240716
  Serious: Yes (Other)
  Sender: FDA-Public Use
  Company Number: IN-ROCHE-3577154

PATIENT
  Sex: Female

DRUGS (12)
  1. RITUXIMAB [Suspect]
     Active Substance: RITUXIMAB
     Indication: Primary mediastinal large B-cell lymphoma
     Route: 065
     Dates: start: 20231104, end: 20231204
  2. POLATUZUMAB VEDOTIN [Suspect]
     Active Substance: POLATUZUMAB VEDOTIN
     Indication: Primary mediastinal large B-cell lymphoma
     Route: 065
  3. ETOPOSIDE PHOSPHATE [Suspect]
     Active Substance: ETOPOSIDE PHOSPHATE
     Indication: Primary mediastinal large B-cell lymphoma
     Route: 065
     Dates: start: 20230628, end: 20231013
  4. PREDNISONE [Suspect]
     Active Substance: PREDNISONE
     Indication: Primary mediastinal large B-cell lymphoma
     Route: 065
  5. CYCLOPHOSPHAMIDE [Suspect]
     Active Substance: CYCLOPHOSPHAMIDE
     Indication: Primary mediastinal large B-cell lymphoma
     Route: 065
     Dates: start: 20230628, end: 20231013
  6. DOXORUBICIN HYDROCHLORIDE [Suspect]
     Active Substance: DOXORUBICIN HYDROCHLORIDE
     Indication: Primary mediastinal large B-cell lymphoma
     Route: 065
     Dates: start: 20230628, end: 20231013
  7. GEMCITABINE [Suspect]
     Active Substance: GEMCITABINE
     Indication: Primary mediastinal large B-cell lymphoma
     Route: 065
     Dates: start: 20231104, end: 20231204
  8. DEXAMETHASONE [Suspect]
     Active Substance: DEXAMETHASONE
     Indication: Primary mediastinal large B-cell lymphoma
     Route: 065
     Dates: start: 20231104, end: 20231204
  9. ONCOVIN [Suspect]
     Active Substance: VINCRISTINE SULFATE
     Indication: Primary mediastinal large B-cell lymphoma
     Route: 065
  10. CISPLATIN [Suspect]
     Active Substance: CISPLATIN
     Indication: Primary mediastinal large B-cell lymphoma
     Route: 065
  11. BRENTUXIMAB VEDOTIN [Suspect]
     Active Substance: BRENTUXIMAB VEDOTIN
     Indication: Primary mediastinal large B-cell lymphoma
     Route: 065
  12. NIVOLUMAB [Suspect]
     Active Substance: NIVOLUMAB
     Indication: Primary mediastinal large B-cell lymphoma
     Route: 065

REACTIONS (1)
  - Primary mediastinal large B-cell lymphoma [Unknown]
